FAERS Safety Report 10255991 (Version 1)
Quarter: 2014Q2

REPORT INFORMATION
  Report Type: Spontaneous
  Country: GR (occurrence: GR)
  Receive Date: 20140624
  Receipt Date: 20140624
  Transmission Date: 20141212
  Serious: Yes (Hospitalization, Other)
  Sender: FDA-Public Use
  Company Number: GR-GLAXOSMITHKLINE-B1006469A

PATIENT
  Age: 39 Year
  Sex: Female

DRUGS (2)
  1. LAMOTRIGINE [Suspect]
     Indication: EPILEPSY
     Route: 065
  2. VALPROIC ACID [Concomitant]
     Indication: EPILEPSY
     Route: 065

REACTIONS (15)
  - Toxic epidermal necrolysis [Recovering/Resolving]
  - Rash maculo-papular [Unknown]
  - Abdominal pain upper [Unknown]
  - Nausea [Unknown]
  - Asthenia [Unknown]
  - Headache [Unknown]
  - Erythema [Unknown]
  - Lymphadenitis [Unknown]
  - Conjunctivitis [Unknown]
  - Rash [Unknown]
  - Blister [Unknown]
  - Oral mucosal erythema [Unknown]
  - Mouth ulceration [Unknown]
  - Burning sensation [Unknown]
  - Concomitant disease aggravated [Unknown]
